FAERS Safety Report 14432437 (Version 4)
Quarter: 2019Q1

REPORT INFORMATION
  Report Type: Spontaneous
  Country: DE (occurrence: PF)
  Receive Date: 20180124
  Receipt Date: 20190114
  Transmission Date: 20190417
  Serious: Yes (Hospitalization, Other)
  Sender: FDA-Public Use
  Company Number: PHHY2017DE199628

PATIENT
  Sex: Female
  Weight: 69 kg

DRUGS (8)
  1. SALBUTAMOL [Suspect]
     Active Substance: ALBUTEROL
     Indication: PRODUCT USED FOR UNKNOWN INDICATION
     Dosage: UNK
     Route: 055
  2. AIRFLUSAL FORSPIRO [Suspect]
     Active Substance: FLUTICASONE PROPIONATE\SALMETEROL XINAFOATE
     Indication: PRODUCT USED FOR UNKNOWN INDICATION
     Dosage: UNK
     Route: 055
  3. HUMIRA [Suspect]
     Active Substance: ADALIMUMAB
     Indication: PSORIASIS
     Dosage: 40 MG, Q2W
     Route: 058
     Dates: start: 20170629
  4. HUMIRA [Suspect]
     Active Substance: ADALIMUMAB
     Indication: PSORIASIS
     Dosage: 1 UNK, Q4W
     Route: 058
     Dates: start: 2018
  5. LEVOTHYROXINE. [Concomitant]
     Active Substance: LEVOTHYROXINE
     Indication: PRODUCT USED FOR UNKNOWN INDICATION
     Dosage: 125 MG, QD
     Route: 065
  6. L-THYROX [Suspect]
     Active Substance: LEVOTHYROXINE SODIUM
     Indication: PRODUCT USED FOR UNKNOWN INDICATION
     Dosage: 100 UG, UNK
     Route: 048
  7. FLUTICASON [Concomitant]
     Active Substance: FLUTICASONE
     Indication: PRODUCT USED FOR UNKNOWN INDICATION
     Dosage: 2 DF, QD
     Route: 065
  8. AIRFLUSAL FORSPIRO [Suspect]
     Active Substance: FLUTICASONE PROPIONATE\SALMETEROL XINAFOATE
     Dosage: 2 UNK, QD
     Route: 065

REACTIONS (20)
  - Nuclear magnetic resonance imaging thoracic abnormal [Unknown]
  - Bronchitis [Unknown]
  - Pneumonia [Not Recovered/Not Resolved]
  - Hyperthyroidism [Unknown]
  - Lung infection [Unknown]
  - Chronic sinusitis [Unknown]
  - Bronchitis bacterial [Unknown]
  - Inflammation [Unknown]
  - Breath sounds abnormal [Unknown]
  - Mucosal haemorrhage [Unknown]
  - Pulmonary fibrosis [Not Recovered/Not Resolved]
  - Bronchial obstruction [Unknown]
  - Traumatic lung injury [Unknown]
  - Increased upper airway secretion [Unknown]
  - Immunodeficiency [Not Recovered/Not Resolved]
  - Lung disorder [Not Recovered/Not Resolved]
  - Staphylococcal infection [Unknown]
  - Osteomyelitis [Unknown]
  - Hiatus hernia [Unknown]
  - Bacterial tracheitis [Unknown]

NARRATIVE: CASE EVENT DATE: 2017
